FAERS Safety Report 21722340 (Version 12)
Quarter: 2023Q4

REPORT INFORMATION
  Report Type: Spontaneous
  Country: US (occurrence: US)
  Receive Date: 20221213
  Receipt Date: 20231228
  Transmission Date: 20240110
  Serious: Yes (Hospitalization, Other)
  Sender: FDA-Public Use
  Company Number: US-PFIZER INC-PV202200120421

PATIENT
  Age: 75 Year
  Sex: Female
  Weight: 76.2 kg

DRUGS (4)
  1. IBRANCE [Suspect]
     Active Substance: PALBOCICLIB
     Indication: Breast cancer female
     Dosage: 75 MG, CYCLIC (TAKE 1 (ONE) TAB PO (ORAL) QD WITH FOOD FOR 21 DAYS, FOLLOWED BY A 7 DAY REST)
     Route: 048
     Dates: start: 201909
  2. IBRANCE [Suspect]
     Active Substance: PALBOCICLIB
     Dosage: 75 MG
  3. FASLODEX [Concomitant]
     Active Substance: FULVESTRANT
     Dosage: UNK
     Route: 030
     Dates: start: 20190717, end: 20231206
  4. FASLODEX [Concomitant]
     Active Substance: FULVESTRANT
     Dosage: UNK

REACTIONS (14)
  - Alopecia [Not Recovered/Not Resolved]
  - Neoplasm [Not Recovered/Not Resolved]
  - Second primary malignancy [Recovered/Resolved]
  - Skin cancer [Recovered/Resolved]
  - Lung neoplasm malignant [Unknown]
  - Malignant pleural effusion [Unknown]
  - Neoplasm recurrence [Not Recovered/Not Resolved]
  - Cyst [Unknown]
  - Fatigue [Not Recovered/Not Resolved]
  - Insomnia [Unknown]
  - Pain [Unknown]
  - Sleep disorder [Unknown]
  - Hair texture abnormal [Unknown]
  - Lymphoedema [Unknown]

NARRATIVE: CASE EVENT DATE: 20210601
